FAERS Safety Report 9161643 (Version 4)
Quarter: 2013Q2

REPORT INFORMATION
  Report Type: Spontaneous
  Country: JP (occurrence: JP)
  Receive Date: 20130313
  Receipt Date: 20130605
  Transmission Date: 20140414
  Serious: Yes (Other)
  Sender: FDA-Public Use
  Company Number: JP-009507513-1303JPN005094

PATIENT
  Age: 60 Year
  Sex: Female

DRUGS (5)
  1. DEXAMETHASONE [Suspect]
     Indication: PLASMA CELL MYELOMA
     Dosage: UNK
     Route: 042
     Dates: start: 201202
  2. DEXAMETHASONE [Suspect]
     Dosage: UNK
     Dates: start: 201103
  3. LENALIDOMIDE [Suspect]
     Indication: PLASMA CELL MYELOMA
     Dosage: UNK
     Route: 048
     Dates: start: 201202
  4. LENALIDOMIDE [Suspect]
     Dosage: UNK
     Route: 048
  5. BORTEZOMIB [Concomitant]

REACTIONS (1)
  - Adenoviral haemorrhagic cystitis [Unknown]
